FAERS Safety Report 4049967 (Version 5)
Quarter: 2020Q3

REPORT INFORMATION
  Report Type: Report from Study
  Country: DE (occurrence: DE)
  Receive Date: 20031218
  Receipt Date: 20041221
  Transmission Date: 20201105
  Serious: Yes (Hospitalization)
  Sender: FDA-Public Use
  Company Number: DE-JNJFOC-20031202250

PATIENT
  Age: 39 Year
  Sex: Male

DRUGS (9)
  1. INFLIXIMAB [Suspect]
     Active Substance: INFLIXIMAB
     Indication: PSORIASIS
     Route: 042
  2. MAGNESIUM [Concomitant]
     Active Substance: MAGNESIUM
     Route: 049
  3. INFLIXIMAB [Suspect]
     Active Substance: INFLIXIMAB
     Route: 042
  4. VASELINUM ALBUM [Concomitant]
     Route: 061
  5. PARACETAMOL [Concomitant]
     Active Substance: ACETAMINOPHEN
     Route: 049
  6. FEXOFENADIN [Concomitant]
     Route: 049
  7. INFLIXIMAB [Suspect]
     Active Substance: INFLIXIMAB
     Route: 042
  8. INFLIXIMAB [Suspect]
     Active Substance: INFLIXIMAB
     Route: 042
  9. UNGENTUM LENIENS [Concomitant]
     Route: 061

REACTIONS (2)
  - Hepatotoxicity [Recovered/Resolved]
  - Hepatic fibrosis [None]

NARRATIVE: CASE EVENT DATE: 20031203
